FAERS Safety Report 18690660 (Version 1)
Quarter: 2021Q1

REPORT INFORMATION
  Report Type: Spontaneous
  Country: US (occurrence: US)
  Receive Date: 20210101
  Receipt Date: 20210101
  Transmission Date: 20210419
  Serious: Yes (Hospitalization, Other)
  Sender: FDA-Public Use
  Company Number: US-ALVOGEN-2020-ALVOGEN-115641

PATIENT
  Age: 14 Year
  Sex: Male
  Weight: 73 kg

DRUGS (1)
  1. BUPROPION. [Suspect]
     Active Substance: BUPROPION
     Indication: SUICIDE ATTEMPT
     Dosage: BUPROPION 75?MG IMMEDIATE?RELEASE TABLETS (MAXIMUM DOSE 2.25 G) IN A SUICIDE ATTEMPT

REACTIONS (3)
  - Overdose [Recovered/Resolved]
  - Status epilepticus [Recovered/Resolved]
  - Serotonin syndrome [Recovered/Resolved]
